FAERS Safety Report 4500123-2 (Version None)
Quarter: 2004Q4

REPORT INFORMATION
  Report Type: 
  Country: None (occurrence: None)
  Receive Date: 20041112
  Receipt Date: 20041101
  Transmission Date: 20050328
  Serious: Yes (Hospitalization)
  Sender: FDA-Public Use
  Company Number: PHBS2004DE14650

PATIENT
  Age: 65 Year
  Sex: Male

DRUGS (1)
  1. ERGOTAMINE TARTRATE [Suspect]
     Indication: MIGRAINE
     Route: 065

REACTIONS (5)
  - CAROTID ARTERY DISSECTION [None]
  - DRUG DEPENDENCE [None]
  - DYSPHAGIA [None]
  - DYSPHONIA [None]
  - PERIPHERAL NERVE PALSY [None]
